FAERS Safety Report 21669378 (Version 1)
Quarter: 2022Q4

REPORT INFORMATION
  Report Type: Report from Study
  Country: PE (occurrence: PE)
  Receive Date: 20221201
  Receipt Date: 20221201
  Transmission Date: 20230113
  Serious: Yes (Hospitalization, Other)
  Sender: FDA-Public Use
  Company Number: PE-AMGEN-PERSL2022205933

PATIENT
  Age: 83 Year
  Sex: Female

DRUGS (2)
  1. PROLIA [Suspect]
     Active Substance: DENOSUMAB
     Indication: Osteoporosis
     Dosage: 60 MILLIGRAM, CYCLICAL
     Route: 058
     Dates: start: 20200925
  2. PROLIA [Suspect]
     Active Substance: DENOSUMAB
     Dosage: 60 MILLIGRAM, CYCLICAL
     Route: 058

REACTIONS (10)
  - Oedema peripheral [Not Recovered/Not Resolved]
  - Face oedema [Not Recovered/Not Resolved]
  - Spinal fracture [Not Recovered/Not Resolved]
  - Lip oedema [Not Recovered/Not Resolved]
  - Lumbar radiculopathy [Not Recovered/Not Resolved]
  - Tachycardia [Recovered/Resolved]
  - Pneumonia [Not Recovered/Not Resolved]
  - Asthenia [Recovered/Resolved]
  - Back pain [Not Recovered/Not Resolved]
  - Urinary tract infection [Not Recovered/Not Resolved]

NARRATIVE: CASE EVENT DATE: 20221111
